FAERS Safety Report 9249061 (Version 1)
Quarter: 2013Q2

REPORT INFORMATION
  Report Type: Report from Study
  Country: US (occurrence: US)
  Receive Date: 20130423
  Receipt Date: 20130423
  Transmission Date: 20140414
  Serious: Yes (Hospitalization)
  Sender: FDA-Public Use
  Company Number: US-ELI_LILLY_AND_COMPANY-US201304003994

PATIENT
  Age: 59 Year
  Sex: Male
  Weight: 70.3 kg

DRUGS (2)
  1. GEMCITABINE HYDROCHLORIDE [Suspect]
     Indication: ADULT T-CELL LYMPHOMA/LEUKAEMIA
     Dosage: 1000 MG/M2 EVERY TWO WEEKS
     Route: 042
     Dates: start: 20130320, end: 20130320
  2. OXALIPLATIN [Suspect]
     Indication: ADULT T-CELL LYMPHOMA/LEUKAEMIA
     Dosage: 100 MG/M2 EVERY TWO WEEKS
     Route: 042
     Dates: start: 20130320, end: 20130320

REACTIONS (1)
  - Cellulitis [Not Recovered/Not Resolved]
